FAERS Safety Report 5531720-3 (Version None)
Quarter: 2007Q4

REPORT INFORMATION
  Report Type: 
  Country: None (occurrence: None)
  Receive Date: 20071203
  Receipt Date: 20071125
  Transmission Date: 20080405
  Serious: Yes (Hospitalization, Other)
  Sender: FDA-Public Use
  Company Number: PT-BRISTOL-MYERS SQUIBB COMPANY-14000525

PATIENT
  Age: 32 Year
  Sex: Female

DRUGS (2)
  1. LYSODREN [Suspect]
     Route: 048
     Dates: end: 20071123
  2. MORPHINE SULFATE [Suspect]

REACTIONS (6)
  - DIPLOPIA [None]
  - DRUG LEVEL ABOVE THERAPEUTIC [None]
  - GAIT DISTURBANCE [None]
  - NEUROLOGICAL SYMPTOM [None]
  - PELVIC PAIN [None]
  - VOMITING [None]
